FAERS Safety Report 6154862-0 (Version None)
Quarter: 2009Q2

REPORT INFORMATION
  Report Type: 
  Country: None (occurrence: None)
  Receive Date: 20090414
  Receipt Date: 20090319
  Transmission Date: 20091009
  Serious: Yes (Death)
  Sender: FDA-Public Use
  Company Number: CN-PFIZER INC-2009186245

PATIENT

DRUGS (5)
  1. ZYVOX [Suspect]
     Indication: CATHETER RELATED INFECTION
     Dosage: 600 MG, 2X/DAY
     Route: 042
     Dates: start: 20080901, end: 20080901
  2. TIENAM [Concomitant]
     Dosage: UNK
     Route: 042
     Dates: end: 20080901
  3. TIENAM [Concomitant]
     Dates: end: 20080901
  4. CASPOFUNGIN [Concomitant]
     Dosage: UNK
     Dates: end: 20080901
  5. CASPOFUNGIN [Concomitant]
     Dates: end: 20080901

REACTIONS (1)
  - MULTI-ORGAN FAILURE [None]
